FAERS Safety Report 18750811 (Version 4)
Quarter: 2021Q1

REPORT INFORMATION
  Report Type: Report from Study
  Country: CN (occurrence: CN)
  Receive Date: 20210118
  Receipt Date: 20210319
  Transmission Date: 20210419
  Serious: Yes (Death)
  Sender: FDA-Public Use
  Company Number: CN-KARYOPHARM THERAPEUTICS, INC.-2021KPT000065

PATIENT
  Age: 57 Year
  Sex: Female

DRUGS (20)
  1. POTASSIUM CHLORIDE. [Concomitant]
     Active Substance: POTASSIUM CHLORIDE
     Indication: HYPOKALAEMIA
     Dosage: 4 G, SINGLE
     Route: 048
     Dates: start: 20210104, end: 20210104
  2. POTASSIUM CHLORIDE. [Concomitant]
     Active Substance: POTASSIUM CHLORIDE
     Dosage: 5 G, SINGLE
     Route: 048
     Dates: start: 20201227, end: 20201227
  3. HAI KUN SHEN XI [Concomitant]
     Indication: BLOOD CREATININE INCREASED
     Dosage: 2 DOSAGE FORM, TID
     Route: 048
     Dates: start: 20201231
  4. RECOMBINANT HUMAN GRANULOCYTE COLONY STIMULATING FACTOR [Concomitant]
     Active Substance: GRANULOCYTE COLONY-STIMULATING FACTOR NOS
     Indication: LEUKOPENIA
     Dosage: 100 UG, SINGLE
     Route: 058
     Dates: start: 20210106, end: 20210106
  5. TRIMETAZIDINE [Concomitant]
     Active Substance: TRIMETAZIDINE
     Indication: CARDIOVASCULAR EVENT PROPHYLAXIS
     Dosage: 20 MG, TID
     Route: 048
     Dates: start: 20210103
  6. DEXAMETHASONE. [Suspect]
     Active Substance: DEXAMETHASONE
     Indication: PLASMA CELL MYELOMA
     Dosage: 20 UG, 2X/WEEK
     Route: 048
     Dates: start: 20201225, end: 20210110
  7. POTASSIUM CHLORIDE. [Concomitant]
     Active Substance: POTASSIUM CHLORIDE
     Dosage: 3 G
     Route: 048
     Dates: start: 20201210, end: 20201210
  8. SELINEXOR [Suspect]
     Active Substance: SELINEXOR
     Indication: PLASMA CELL MYELOMA
     Dosage: 80 MG, 2X/WEEK
     Route: 048
     Dates: start: 20201225, end: 20210110
  9. SODIUM BICARBONATE. [Concomitant]
     Active Substance: SODIUM BICARBONATE
     Indication: BLOOD ALKALINISATION THERAPY
     Dosage: 40 ML
     Route: 042
     Dates: start: 20201225, end: 20210106
  10. POTASSIUM CHLORIDE. [Concomitant]
     Active Substance: POTASSIUM CHLORIDE
     Dosage: 9 G
     Route: 048
     Dates: start: 20201209, end: 20201209
  11. SHEN SHUAI NING [Concomitant]
     Indication: BLOOD CREATININE INCREASED
     Dosage: 4 DOSAGE FORM, TID
     Route: 048
     Dates: start: 20201231
  12. RECOMBINANT HUMAN GRANULOCYTE COLONY STIMULATING FACTOR [Concomitant]
     Active Substance: GRANULOCYTE COLONY-STIMULATING FACTOR NOS
     Indication: PLATELET COUNT DECREASED
  13. TORSEMIDE. [Concomitant]
     Active Substance: TORSEMIDE
     Dosage: 1 DOSAGE FORM, SINGLE
     Route: 042
     Dates: start: 20210102, end: 20210105
  14. ALBUMIN [Concomitant]
     Active Substance: ALBUMIN HUMAN
     Indication: SYMPTOMATIC TREATMENT
     Dosage: 10 G, ONCE ON 03JAN2021, TWICE ON 04JAN2021
     Route: 042
     Dates: start: 20210103, end: 20210104
  15. TORSEMIDE. [Concomitant]
     Active Substance: TORSEMIDE
     Indication: DIURETIC THERAPY
     Dosage: 20 MG, SINGLE
     Route: 042
     Dates: start: 20201231, end: 20201231
  16. POTASSIUM CHLORIDE. [Concomitant]
     Active Substance: POTASSIUM CHLORIDE
     Dosage: 4 G, SINGLE
     Route: 048
     Dates: start: 20210106, end: 20210106
  17. SALT [Concomitant]
     Active Substance: SODIUM CHLORIDE
     Indication: HYPONATRAEMIA
     Dosage: 2 DOSAGE FORM, TID
     Route: 048
     Dates: start: 20201227
  18. NORFLOXACIN [Concomitant]
     Active Substance: NORFLOXACIN
     Indication: ANTI-INFECTIVE THERAPY
     Dosage: 0.2 G, BID
     Route: 048
     Dates: start: 20201228, end: 20201231
  19. BICYCLOL [Concomitant]
     Active Substance: BICYCLOL
     Indication: HEPATOBILIARY DISORDER PROPHYLAXIS
     Dosage: 50 MG, BID
     Route: 048
     Dates: start: 20201229
  20. MEGESTROL [Concomitant]
     Active Substance: MEGESTROL
     Indication: VOMITING
     Dosage: 80 MG, QD
     Route: 048
     Dates: start: 20201225

REACTIONS (1)
  - Death [Fatal]

NARRATIVE: CASE EVENT DATE: 20210113
